FAERS Safety Report 23264309 (Version 1)
Quarter: 2023Q4

REPORT INFORMATION
  Report Type: Spontaneous
  Country: JP (occurrence: JP)
  Receive Date: 20231205
  Receipt Date: 20231205
  Transmission Date: 20240109
  Serious: Yes (Life-Threatening, Hospitalization, Other)
  Sender: FDA-Public Use
  Company Number: JP-CELGENE-JPN-20190207114

PATIENT
  Age: 67 Year
  Sex: Male

DRUGS (8)
  1. LENADEX [Suspect]
     Active Substance: DEXAMETHASONE ACETATE
     Indication: Amyloidosis
     Dosage: 33 MG/D FOR FOUR DAYS PER COURSE
     Route: 048
  2. THALIDOMIDE [Suspect]
     Active Substance: THALIDOMIDE
     Indication: Primary amyloidosis
     Dosage: BEGAN TAKING THALIDOMIDE EVERY OTHER MONTH IN CONJUNCTION WITH LOW-DOSE PREDNISOLONE
  3. THALIDOMIDE [Suspect]
     Active Substance: THALIDOMIDE
     Indication: Immunosuppressant drug therapy
     Dosage: FOR MAINTENANCE THERAPY
  4. MELPHALAN [Suspect]
     Active Substance: MELPHALAN
     Indication: Amyloidosis
  5. MELPHALAN [Suspect]
     Active Substance: MELPHALAN
     Dosage: 6 MG/D FOR SIX DAYS PER COURSE
  6. PREDNISOLONE [Suspect]
     Active Substance: PREDNISOLONE
     Indication: Drug eruption
     Dosage: (5-10 MG/D) LOW-DOSE PREDNISOLONE
     Route: 048
  7. PREDNISOLONE [Suspect]
     Active Substance: PREDNISOLONE
     Route: 048
  8. PREDNISOLONE [Suspect]
     Active Substance: PREDNISOLONE
     Dosage: (5-10 MG/D) LOW-DOSE PREDNISOLONE
     Route: 048

REACTIONS (6)
  - Progressive multifocal leukoencephalopathy [Not Recovered/Not Resolved]
  - Pancytopenia [Unknown]
  - Hypogammaglobulinaemia [Not Recovered/Not Resolved]
  - Lymphopenia [Not Recovered/Not Resolved]
  - Myelosuppression [Not Recovered/Not Resolved]
  - JC virus infection [Not Recovered/Not Resolved]
